FAERS Safety Report 5022321-4 (Version None)
Quarter: 2006Q2

REPORT INFORMATION
  Report Type: 
  Country: None (occurrence: None)
  Receive Date: 20060609
  Receipt Date: 20060531
  Transmission Date: 20061013
  Serious: Yes (Other)
  Sender: FDA-Public Use
  Company Number: US-JNJFOC-20060601113

PATIENT
  Sex: Female

DRUGS (2)
  1. MOTRIN [Suspect]
     Indication: BACK PAIN
  2. MOTRIN [Suspect]
     Indication: ARTHROPATHY

REACTIONS (2)
  - LOWER LIMB FRACTURE [None]
  - TRACHEOSTOMY [None]
